FAERS Safety Report 25338263 (Version 1)
Quarter: 2025Q2

REPORT INFORMATION
  Report Type: Spontaneous
  Country: US (occurrence: US)
  Receive Date: 20250520
  Receipt Date: 20250520
  Transmission Date: 20250717
  Serious: Yes (Other)
  Sender: ANI
  Company Number: US-ANIPHARMA-2025-US-018661

PATIENT
  Sex: Male

DRUGS (5)
  1. BICALUTAMIDE [Suspect]
     Active Substance: BICALUTAMIDE
     Indication: Metastatic neoplasm
  2. PERTUZUMAB [Suspect]
     Active Substance: PERTUZUMAB
  3. TRASTUZUMAB [Suspect]
     Active Substance: TRASTUZUMAB
  4. LEUPROLIDE [Suspect]
     Active Substance: LEUPROLIDE
  5. PEMBROLIZUMAB [Suspect]
     Active Substance: PEMBROLIZUMAB
     Indication: Metastatic neoplasm

REACTIONS (1)
  - Disease progression [Unknown]
